FAERS Safety Report 8733971 (Version 4)
Quarter: 2012Q4

REPORT INFORMATION
  Report Type: 
  Country: GB (occurrence: GB)
  Receive Date: 20120821
  Receipt Date: 20120927
  Transmission Date: 20130627
  Serious: No
  Sender: FDA-Public Use
  Company Number: GB-SANOFI-AVENTIS-2012SA058290

PATIENT
  Age: 54 Year
  Sex: Female
  Weight: 117 kg

DRUGS (4)
  1. LANTUS [Suspect]
     Indication: TYPE 2 DIABETES MELLITUS
     Dosage: cartridge Dose:26 unit(s)
     Route: 058
     Dates: start: 20120720, end: 20120814
  2. RAMIPRIL [Concomitant]
     Indication: HYPERTENSION
     Route: 048
     Dates: start: 2000
  3. METFORMIN [Concomitant]
     Indication: DIABETES MELLITUS
     Route: 048
     Dates: start: 2005
  4. OMEPRAZOLE [Concomitant]
     Indication: DYSPEPSIA
     Route: 048
     Dates: start: 2012

REACTIONS (8)
  - Injection site haemorrhage [Unknown]
  - Erythema [Unknown]
  - Weight increased [Unknown]
  - Oedema peripheral [Unknown]
  - Oedema peripheral [Unknown]
  - Injection site pain [Recovered/Resolved]
  - Injection site urticaria [Unknown]
  - Hyperglycaemia [Unknown]
